FAERS Safety Report 9020334 (Version 1)
Quarter: 2013Q1

REPORT INFORMATION
  Report Type: Spontaneous
  Country: US (occurrence: US)
  Receive Date: 20130119
  Receipt Date: 20130119
  Transmission Date: 20140127
  Serious: No
  Sender: FDA-Public Use
  Company Number: US-ALLERGAN-1208710US

PATIENT
  Age: 36 None
  Sex: Male
  Weight: 85.26 kg

DRUGS (5)
  1. BOTOX? [Suspect]
     Indication: MUSCLE SPASTICITY
     Dosage: 900 UNITS, SINGLE
     Route: 030
     Dates: start: 20120202, end: 20120202
  2. CLONIDINE HCL [Concomitant]
     Indication: BLOOD PRESSURE
     Dosage: 0.2 MG, TID
  3. GEMFIBROZIL [Concomitant]
     Indication: BLOOD CHOLESTEROL
     Dosage: 600 MG, BID
  4. HYDRALAZINE HCL [Concomitant]
     Indication: BLOOD PRESSURE
     Dosage: 100 MG, UNK
  5. KEPPRA [Concomitant]
     Indication: CONVULSION
     Dosage: 750 MG, UNK

REACTIONS (1)
  - Muscular weakness [Recovered/Resolved]
